FAERS Safety Report 6272242-4 (Version None)
Quarter: 2009Q3

REPORT INFORMATION
  Report Type: 
  Country: None (occurrence: None)
  Receive Date: 20090717
  Receipt Date: 20090713
  Transmission Date: 20100115
  Serious: Yes (Other)
  Sender: FDA-Public Use
  Company Number: FR-JNJFOC-20090704497

PATIENT
  Age: 33 Year
  Sex: Female

DRUGS (2)
  1. RISPERDAL [Suspect]
     Indication: HALLUCINATION
     Route: 065
  2. TERCIAN [Suspect]
     Indication: HALLUCINATION
     Route: 065

REACTIONS (2)
  - DELIRIUM [None]
  - HEPATITIS [None]
